FAERS Safety Report 4806509-0 (Version None)
Quarter: 2005Q4

REPORT INFORMATION
  Report Type: 
  Country: None (occurrence: None)
  Receive Date: 20051019
  Receipt Date: 20051019
  Transmission Date: 20060501
  Serious: Yes (Life-Threatening)
  Sender: FDA-Public Use
  Company Number: None

PATIENT
  Age: 61 Year
  Sex: Male
  Weight: 86.1834 kg

DRUGS (1)
  1. LUNESTA [Suspect]
     Indication: SOMNOLENCE
     Dates: start: 20050928, end: 20051001

REACTIONS (10)
  - ASTHENIA [None]
  - DRY MOUTH [None]
  - DYSGEUSIA [None]
  - HEADACHE [None]
  - MYALGIA [None]
  - NASAL CONGESTION [None]
  - RASH [None]
  - RESPIRATORY ARREST [None]
  - TONGUE DISORDER [None]
  - TREMOR [None]
